FAERS Safety Report 4389591-7 (Version None)
Quarter: 2004Q2

REPORT INFORMATION
  Report Type: 
  Country: None (occurrence: None)
  Receive Date: 20040629
  Receipt Date: 20040226
  Transmission Date: 20050107
  Serious: Yes (Hospitalization)
  Sender: FDA-Public Use
  Company Number: US-JNJFOC-20040204933

PATIENT
  Sex: Male

DRUGS (1)
  1. DURAGESIC [Suspect]
     Dosage: 75 UG/HR, TRANSDERMAL
     Route: 062

REACTIONS (3)
  - DRUG WITHDRAWAL SYNDROME [None]
  - FEELING HOT AND COLD [None]
  - HYPERHIDROSIS [None]
